FAERS Safety Report 8717875 (Version 3)
Quarter: 2012Q4

REPORT INFORMATION
  Report Type: 
  Country: RU (occurrence: RU)
  Receive Date: 20120810
  Receipt Date: 20121101
  Transmission Date: 20130627
  Serious: Yes (Other)
  Sender: FDA-Public Use
  Company Number: RU-ROCHE-1098452

PATIENT
  Sex: Female

DRUGS (1)
  1. XENICAL [Suspect]
     Indication: PRODUCT USED FOR UNKNOWN INDICATION
     Route: 048
     Dates: start: 201102, end: 201111

REACTIONS (1)
  - Faeces discoloured [Recovered/Resolved]
